FAERS Safety Report 9743306 (Version 3)
Quarter: 2013Q4

REPORT INFORMATION
  Report Type: Report from Study
  Country: AU (occurrence: AU)
  Receive Date: 20131210
  Receipt Date: 20131220
  Transmission Date: 20140711
  Serious: Yes (Hospitalization)
  Sender: FDA-Public Use
  Company Number: AU-ONYX-2013-0713

PATIENT
  Age: 70 Year
  Sex: Female

DRUGS (19)
  1. CARFILZOMIB [Suspect]
     Indication: PLASMA CELL MYELOMA
     Route: 042
     Dates: start: 20130212, end: 20130213
  2. CARFILZOMIB [Suspect]
     Route: 042
     Dates: start: 20130219, end: 20130227
  3. CARFILZOMIB [Suspect]
     Route: 042
     Dates: start: 20130312, end: 20130424
  4. DEXAMETHASONE [Suspect]
     Indication: PLASMA CELL MYELOMA
     Route: 048
     Dates: start: 20130212, end: 20130227
  5. DEXAMETHASONE [Suspect]
     Route: 048
     Dates: start: 20130312, end: 20130501
  6. NEXIUM [Concomitant]
     Indication: HIATUS HERNIA
     Route: 048
     Dates: start: 200810
  7. VITAMIN C [Concomitant]
     Indication: VITAMIN SUPPLEMENTATION
     Route: 048
     Dates: start: 2008
  8. IRON [Concomitant]
     Indication: MINERAL SUPPLEMENTATION
     Route: 048
     Dates: start: 2008
  9. MAGNESIUM [Concomitant]
     Indication: MINERAL SUPPLEMENTATION
     Route: 048
     Dates: start: 2008
  10. CALCIUM [Concomitant]
     Indication: MINERAL SUPPLEMENTATION
     Route: 048
     Dates: start: 2008
  11. SIMETHICONE [Concomitant]
     Indication: HIATUS HERNIA
     Route: 048
     Dates: start: 200810
  12. PARACETAMOL [Concomitant]
     Indication: PAIN MANAGEMENT
     Route: 048
     Dates: start: 20130215
  13. VALTREX [Concomitant]
     Indication: PROPHYLAXIS
     Route: 048
     Dates: start: 20130212
  14. TEMAZEPAM [Concomitant]
     Indication: INSOMNIA
     Route: 048
     Dates: start: 20130222
  15. ENDONE [Concomitant]
     Indication: PAIN MANAGEMENT
     Route: 048
     Dates: start: 20130215, end: 20130512
  16. ENDONE [Concomitant]
     Route: 045
     Dates: start: 20130322
  17. ASPIRIN [Concomitant]
     Indication: THROMBOSIS PROPHYLAXIS
     Route: 048
     Dates: start: 20130228
  18. LORAZEPAM [Concomitant]
     Indication: INSOMNIA
     Route: 048
     Dates: start: 201302
  19. CHOLECALCIFEROL [Concomitant]
     Indication: SUPPLEMENTATION THERAPY
     Route: 048
     Dates: start: 20130320

REACTIONS (3)
  - Mobility decreased [Not Recovered/Not Resolved]
  - Arthralgia [Recovering/Resolving]
  - Neuralgia [Recovering/Resolving]
